FAERS Safety Report 17084756 (Version 5)
Quarter: 2020Q2

REPORT INFORMATION
  Report Type: Report from Study
  Country: US (occurrence: US)
  Receive Date: 20191127
  Receipt Date: 20200521
  Transmission Date: 20200713
  Serious: Yes (Hospitalization, Other)
  Sender: FDA-Public Use
  Company Number: US-ACTELION-A-NJ2019-195223

PATIENT
  Age: 57 Year
  Sex: Female
  Weight: 70.3 kg

DRUGS (16)
  1. ASPIRIN. [Concomitant]
     Active Substance: ASPIRIN
     Dosage: 81 MG
  2. OPSUMIT [Suspect]
     Active Substance: MACITENTAN
     Indication: LUNG DISORDER
     Dosage: 10 MG, QD
     Route: 048
     Dates: start: 20190815
  3. FUROSEMIDE. [Concomitant]
     Active Substance: FUROSEMIDE
     Dosage: 40 MG, QD
  4. OXYBUTYNIN. [Concomitant]
     Active Substance: OXYBUTYNIN CHLORIDE
     Dosage: 10 MG, QD
  5. CLOPIDOGREL [Concomitant]
     Active Substance: CLOPIDOGREL BISULFATE
     Dosage: UNK MG
  6. ATORVASTATIN [Concomitant]
     Active Substance: ATORVASTATIN
     Dosage: 40 MG, QD
  7. FOLIC ACID. [Concomitant]
     Active Substance: FOLIC ACID
     Dosage: 1 MG, TID
  8. VIIBRYD [Concomitant]
     Active Substance: VILAZODONE HYDROCHLORIDE
     Dosage: 40 MG, QPM
  9. AMBRISENTAN [Concomitant]
     Active Substance: AMBRISENTAN
  10. PANTOPRAZOLE [Concomitant]
     Active Substance: PANTOPRAZOLE
     Dosage: 10 MG, QD
  11. POTASSIUM [Concomitant]
     Active Substance: POTASSIUM
     Dosage: 10 MG, TID
  12. TRAZODONE [Concomitant]
     Active Substance: TRAZODONE HYDROCHLORIDE
     Dosage: 100 MG, QPM
  13. OPSUMIT [Suspect]
     Active Substance: MACITENTAN
     Indication: PULMONARY ARTERIAL HYPERTENSION
     Dosage: 10 MG, QD
     Route: 048
     Dates: start: 202005
  14. ACETAZOLAMIDE. [Concomitant]
     Active Substance: ACETAZOLAMIDE
     Dosage: 500 MG, QD
  15. METHOTREXATE. [Concomitant]
     Active Substance: METHOTREXATE
     Dosage: 7.5 MG, Q1WEEK
  16. GABAPENTIN. [Concomitant]
     Active Substance: GABAPENTIN
     Dosage: 600 MG, BID

REACTIONS (18)
  - Oral mucosal blistering [Recovered/Resolved]
  - Headache [Recovered/Resolved]
  - Malaise [Not Recovered/Not Resolved]
  - Oxygen saturation decreased [Unknown]
  - Heart rate increased [Unknown]
  - Fall [Recovered/Resolved]
  - Pain [Unknown]
  - Influenza [Unknown]
  - Asthenia [Unknown]
  - Abdominal discomfort [Recovered/Resolved]
  - Therapy non-responder [Unknown]
  - Dyspnoea [Unknown]
  - Fatigue [Unknown]
  - Pyrexia [Recovered/Resolved]
  - Myocardial infarction [Unknown]
  - Muscular weakness [Unknown]
  - Cerebral haemorrhage [Recovered/Resolved]
  - Oropharyngeal pain [Not Recovered/Not Resolved]

NARRATIVE: CASE EVENT DATE: 20190826
